FAERS Safety Report 8328585-3 (Version None)
Quarter: 2012Q2

REPORT INFORMATION
  Report Type: 
  Country: None (occurrence: None)
  Receive Date: 20120502
  Receipt Date: 20120426
  Transmission Date: 20120825
  Serious: Yes (Death)
  Sender: FDA-Public Use
  Company Number: FR-SANOFI-AVENTIS-2012SA029997

PATIENT
  Sex: Male

DRUGS (3)
  1. CAPECITABINE [Suspect]
     Dosage: RECEIVED 3000 MG/M2/DAY ON DAY 1 TO 7 EVERY 2 WEEKS
     Route: 065
  2. OXALIPLATIN [Suspect]
     Dosage: RECEIVED 85 MG/M2 OVER 2 HR ON DAY 1
     Route: 042
  3. IRINOTECAN HCL [Suspect]
     Dosage: RECEIVED 180 MG/M2 ON DAY 1
     Route: 065

REACTIONS (1)
  - LUNG DISORDER [None]
